FAERS Safety Report 5672416-7 (Version None)
Quarter: 2008Q1

REPORT INFORMATION
  Report Type: 
  Country: None (occurrence: None)
  Receive Date: 20080311
  Receipt Date: 20071220
  Transmission Date: 20080703
  Serious: Yes (Other)
  Sender: FDA-Public Use
  Company Number: 002#4#2007-00397

PATIENT

DRUGS (1)
  1. NEUPRO [Suspect]
     Indication: DRUG USE FOR UNKNOWN INDICATION
     Dosage: MG/24H, 1 IN 1, TRANSDERMAL
     Route: 062
     Dates: start: 20071101

REACTIONS (1)
  - CONVULSION [None]
